FAERS Safety Report 8737507 (Version 10)
Quarter: 2013Q3

REPORT INFORMATION
  Report Type: Report from Study
  Country: JP (occurrence: JP)
  Receive Date: 20120822
  Receipt Date: 20130701
  Transmission Date: 20140515
  Serious: Yes (Hospitalization, Other)
  Sender: FDA-Public Use
  Company Number: JP-009507513-1208JPN000283

PATIENT
  Age: 54 Year
  Sex: Male
  Weight: 67 kg

DRUGS (10)
  1. PEGINTRON [Suspect]
     Indication: CHRONIC HEPATITIS C
     Dosage: 1.5MCG/KG/WEEK
     Route: 058
     Dates: start: 20120210, end: 20120628
  2. REBETOL [Suspect]
     Indication: CHRONIC HEPATITIS C
     Dosage: 800 MG, QD
     Route: 048
     Dates: start: 20120210, end: 20120220
  3. REBETOL [Suspect]
     Dosage: 600 MG, QD
     Route: 048
     Dates: start: 20120221, end: 20120221
  4. REBETOL [Suspect]
     Dosage: 400 MG, QD
     Route: 048
     Dates: start: 20120222, end: 20120224
  5. REBETOL [Suspect]
     Dosage: 200 MG, QD
     Route: 048
     Dates: start: 20120225, end: 20120705
  6. TELAVIC [Suspect]
     Indication: CHRONIC HEPATITIS C
     Dosage: 2250 MG, QD
     Route: 048
     Dates: start: 20120210, end: 20120307
  7. TELAVIC [Suspect]
     Dosage: 1500 MG, QD
     Route: 048
     Dates: start: 20120308, end: 20120416
  8. TELAVIC [Suspect]
     Dosage: 1000 MG, QD
     Route: 048
     Dates: start: 20120417, end: 20120503
  9. ZYLORIC [Suspect]
     Indication: HYPERURICAEMIA
     Dosage: FORMULATION:POR 200 MG, QD
     Route: 048
     Dates: start: 20120308, end: 20120713
  10. URSO [Concomitant]
     Indication: CHRONIC HEPATITIS C
     Dosage: 600 MG, QD FORMULATION: POR
     Route: 048
     Dates: end: 20120308

REACTIONS (4)
  - Drug eruption [Recovering/Resolving]
  - Haemoglobin decreased [Not Recovered/Not Resolved]
  - Pneumonia [Recovering/Resolving]
  - Stevens-Johnson syndrome [Recovering/Resolving]
